FAERS Safety Report 9179645 (Version 1)
Quarter: 2012Q4

REPORT INFORMATION
  Report Type: 
  Country: US (occurrence: US)
  Receive Date: 20121029
  Receipt Date: 20121029
  Transmission Date: 20130627
  Serious: No
  Sender: FDA-Public Use
  Company Number: US-AMGEN-USASP2012056716

PATIENT
  Age: 14 Year
  Sex: Male

DRUGS (2)
  1. ENBREL [Suspect]
     Indication: JUVENILE ARTHRITIS
     Dosage: 25 mg, 2 times/wk
     Route: 058
     Dates: start: 20120315
  2. METHOTREXATE [Concomitant]
     Dosage: 25 UNK, UNK
     Dates: start: 20100615

REACTIONS (3)
  - Ear infection [Not Recovered/Not Resolved]
  - Hypersensitivity [Not Recovered/Not Resolved]
  - Oropharyngeal pain [Not Recovered/Not Resolved]
